FAERS Safety Report 20411421 (Version 1)
Quarter: 2022Q1

REPORT INFORMATION
  Report Type: Spontaneous
  Country: US (occurrence: US)
  Receive Date: 20220201
  Receipt Date: 20220201
  Transmission Date: 20220423
  Serious: No
  Sender: FDA-Public Use
  Company Number: US-CHIESI-2021CHF02279

PATIENT
  Sex: Female

DRUGS (1)
  1. ZYFLO [Suspect]
     Active Substance: ZILEUTON
     Indication: Nasal polyps
     Dosage: 1200 MILLIGRAM, BID
     Route: 048

REACTIONS (4)
  - Product dose omission issue [Unknown]
  - Off label use [Unknown]
  - Incorrect dose administered [Unknown]
  - No adverse event [Recovered/Resolved]
